FAERS Safety Report 12917562 (Version 1)
Quarter: 2016Q4

REPORT INFORMATION
  Report Type: Spontaneous
  Country: TR (occurrence: TR)
  Receive Date: 20161107
  Receipt Date: 20161107
  Transmission Date: 20170207
  Serious: Yes (Hospitalization, Other)
  Sender: FDA-Public Use
  Company Number: TR-BAUSCH-BL-2016-027202

PATIENT
  Age: 7 Year
  Sex: Female

DRUGS (2)
  1. CLINDAMYCIN. [Suspect]
     Active Substance: CLINDAMYCIN
     Indication: ANTIBIOTIC THERAPY
     Route: 042
  2. CEFTRIAXONE. [Suspect]
     Active Substance: CEFTRIAXONE
     Indication: ANTIBIOTIC THERAPY
     Route: 030

REACTIONS (6)
  - Myositis [Recovered/Resolved]
  - Mastoiditis [Recovered/Resolved]
  - Otitis media acute [Recovered/Resolved]
  - Abscess [Recovered/Resolved]
  - Tympanic membrane perforation [Recovered/Resolved]
  - Joint effusion [Recovered/Resolved]
